FAERS Safety Report 8899178 (Version 1)
Quarter: 2012Q4

REPORT INFORMATION
  Report Type: 
  Country: US (occurrence: US)
  Receive Date: 20121109
  Receipt Date: 20121109
  Transmission Date: 20130627
  Serious: Yes (Other)
  Sender: FDA-Public Use
  Company Number: CHPA2012US023353

PATIENT
  Age: 59 Year
  Sex: Female

DRUGS (1)
  1. PREVACID 24HR 15MG [Suspect]
     Indication: DYSPEPSIA
     Dosage: 30mg - 45mg per day
     Route: 048

REACTIONS (5)
  - Drug dependence [Unknown]
  - Malaise [Unknown]
  - Prescribed overdose [Unknown]
  - Off label use [Unknown]
  - Incorrect drug administration duration [Unknown]
